FAERS Safety Report 4497830-7 (Version None)
Quarter: 2004Q4

REPORT INFORMATION
  Report Type: 
  Country: None (occurrence: None)
  Receive Date: 20041110
  Receipt Date: 20041102
  Transmission Date: 20050328
  Serious: Yes (Other)
  Sender: FDA-Public Use
  Company Number: US-GLAXOSMITHKLINE-A0532362A

PATIENT
  Sex: Male

DRUGS (1)
  1. PAXIL [Suspect]
     Indication: ANXIETY

REACTIONS (5)
  - ANXIETY [None]
  - DISCOMFORT [None]
  - DRUG WITHDRAWAL SYNDROME [None]
  - PAIN [None]
  - SUICIDAL IDEATION [None]
